FAERS Safety Report 13020997 (Version 1)
Quarter: 2016Q4

REPORT INFORMATION
  Report Type: Spontaneous
  Country: US (occurrence: US)
  Receive Date: 20161213
  Receipt Date: 20161213
  Transmission Date: 20170207
  Serious: Yes (Other)
  Sender: FDA-Public Use
  Company Number: US-ROCHE-1866296

PATIENT
  Age: 62 Year
  Sex: Female
  Weight: 56.5 kg

DRUGS (12)
  1. FAMOTIDINE. [Concomitant]
     Active Substance: FAMOTIDINE
     Route: 048
     Dates: start: 20161205
  2. SODIUM CHLORIDE. [Concomitant]
     Active Substance: SODIUM CHLORIDE
     Route: 042
  3. SOLU-CORTEF [Concomitant]
     Active Substance: HYDROCORTISONE SODIUM SUCCINATE
     Indication: HYPERSENSITIVITY
     Dosage: ONCE
     Route: 042
     Dates: start: 20161205
  4. BENADRYL [Concomitant]
     Active Substance: DIPHENHYDRAMINE HYDROCHLORIDE
  5. ZOMETA [Concomitant]
     Active Substance: ZOLEDRONIC ACID
  6. DEXAMETHASONE. [Concomitant]
     Active Substance: DEXAMETHASONE
     Route: 042
  7. ACETAMINOPHEN. [Concomitant]
     Active Substance: ACETAMINOPHEN
     Route: 048
  8. PERJETA [Suspect]
     Active Substance: PERTUZUMAB
     Indication: BREAST CANCER METASTATIC
     Dosage: ONCE
     Route: 042
     Dates: start: 20161205, end: 20161205
  9. DIPHENHYDRAMINE. [Concomitant]
     Active Substance: DIPHENHYDRAMINE
     Indication: HYPERSENSITIVITY
     Dosage: ONCE
     Route: 042
     Dates: start: 20161205
  10. HERCEPTIN [Suspect]
     Active Substance: TRASTUZUMAB
     Indication: PRODUCT USED FOR UNKNOWN INDICATION
     Dosage: UNKNOWN
     Route: 065
  11. METOPROLOL. [Concomitant]
     Active Substance: METOPROLOL
     Route: 048
     Dates: start: 20161121
  12. NITROGLYCERIN. [Concomitant]
     Active Substance: NITROGLYCERIN
     Indication: HYPERSENSITIVITY
     Dosage: ONCE
     Route: 048

REACTIONS (4)
  - Oxygen saturation decreased [Recovered/Resolved]
  - Dyspnoea [Unknown]
  - Chest discomfort [Recovered/Resolved]
  - Cough [Unknown]

NARRATIVE: CASE EVENT DATE: 20161205
